FAERS Safety Report 17434927 (Version 1)
Quarter: 2020Q1

REPORT INFORMATION
  Report Type: Report from Study
  Country: BR (occurrence: BR)
  Receive Date: 20200219
  Receipt Date: 20200219
  Transmission Date: 20200409
  Serious: Yes (Other)
  Sender: FDA-Public Use
  Company Number: NVSC2019BR059161

PATIENT
  Age: 52 Year
  Sex: Female

DRUGS (2)
  1. COSENTYX [Suspect]
     Active Substance: SECUKINUMAB
     Indication: PRODUCT USED FOR UNKNOWN INDICATION
     Dosage: 300 MG
     Route: 065
     Dates: start: 20191031
  2. COSENTYX [Suspect]
     Active Substance: SECUKINUMAB
     Dosage: 300 UNK
     Route: 065
     Dates: start: 20200128

REACTIONS (9)
  - Concomitant disease aggravated [Recovered/Resolved]
  - Spinal cord disorder [Unknown]
  - Feeling hot [Recovered/Resolved]
  - Head discomfort [Recovered/Resolved]
  - Pyrexia [Recovered/Resolved]
  - Dry skin [Not Recovered/Not Resolved]
  - Headache [Recovered/Resolved]
  - Dizziness [Recovered/Resolved]
  - Breast mass [Unknown]

NARRATIVE: CASE EVENT DATE: 20191031
